FAERS Safety Report 23793816 (Version 6)
Quarter: 2025Q4

REPORT INFORMATION
  Report Type: Spontaneous
  Country: CA (occurrence: CA)
  Receive Date: 20240429
  Receipt Date: 20251028
  Transmission Date: 20260118
  Serious: Yes (Hospitalization, Other)
  Sender: PFIZER
  Company Number: CA-PFIZER INC-202300148393

PATIENT
  Age: 73 Year
  Sex: Male

DRUGS (6)
  1. RUXIENCE [Suspect]
     Active Substance: RITUXIMAB-PVVR
     Indication: Granulomatosis with polyangiitis
     Dosage: 1000 MG, ON DAY 1 AND DAY 15, HOSPITAL START
     Route: 042
     Dates: start: 20230401, end: 20230417
  2. RUXIENCE [Suspect]
     Active Substance: RITUXIMAB-PVVR
     Dosage: 500 MG, EVERY 6 MONTHS(MAINTENANCE DOSE)
     Route: 042
     Dates: start: 20231020, end: 20231020
  3. RUXIENCE [Suspect]
     Active Substance: RITUXIMAB-PVVR
     Dosage: 500 MG, EVERY 6 MONTHS (1 DOSE OF RETREATMENT, EVERY 6 MONTHS)
     Route: 042
     Dates: start: 20240423, end: 20240423
  4. RUXIENCE [Suspect]
     Active Substance: RITUXIMAB-PVVR
     Dosage: 500 MG, DAY 1 RETREATMENT (EVERY 6 MONTH)
     Route: 042
     Dates: start: 20240923
  5. RUXIENCE [Suspect]
     Active Substance: RITUXIMAB-PVVR
     Dosage: 500 MG, SUBSEQUENT DAY 1 (EVERY 6 MONTH)
     Route: 042
     Dates: start: 20250226
  6. RUXIENCE [Suspect]
     Active Substance: RITUXIMAB-PVVR
     Dosage: 500 MG, RETREATMENT DAY 1 (500 MG EVERY 6 MONTH MAINTENANCE DOSE)
     Route: 042
     Dates: start: 20250723

REACTIONS (14)
  - Pneumonia [Recovered/Resolved]
  - Condition aggravated [Recovering/Resolving]
  - Pain in extremity [Not Recovered/Not Resolved]
  - Hypoaesthesia [Not Recovered/Not Resolved]
  - Therapeutic response shortened [Unknown]
  - C-reactive protein increased [Unknown]
  - Dyspnoea [Unknown]
  - Cough [Unknown]
  - Muscle spasms [Not Recovered/Not Resolved]
  - Sensory disturbance [Not Recovered/Not Resolved]
  - Balance disorder [Not Recovered/Not Resolved]
  - Off label use [Unknown]
  - Off label use [Unknown]
  - Intentional product use issue [Unknown]

NARRATIVE: CASE EVENT DATE: 20230401
